FAERS Safety Report 12525940 (Version 1)
Quarter: 2016Q3

REPORT INFORMATION
  Report Type: Spontaneous
  Country: US (occurrence: US)
  Receive Date: 20160705
  Receipt Date: 20160705
  Transmission Date: 20161109
  Serious: No
  Sender: FDA-Public Use
  Company Number: US-009507513-1606USA013001

PATIENT
  Sex: Male

DRUGS (1)
  1. STROMECTOL [Suspect]
     Active Substance: IVERMECTIN
     Indication: INFECTION PARASITIC
     Dosage: UNK
     Route: 048
     Dates: start: 201506

REACTIONS (2)
  - Infection parasitic [Unknown]
  - Off label use [Unknown]
